FAERS Safety Report 8952523 (Version 1)
Quarter: 2012Q4

REPORT INFORMATION
  Report Type: Report from Study
  Country: US (occurrence: US)
  Receive Date: 20121205
  Receipt Date: 20121205
  Transmission Date: 20130627
  Serious: Yes (Other)
  Sender: FDA-Public Use
  Company Number: US-JNJFOC-20121113578

PATIENT
  Sex: Female
  Weight: 54.43 kg

DRUGS (3)
  1. REMICADE [Suspect]
     Indication: CROHN^S DISEASE
     Route: 042
     Dates: start: 20120909
  2. BACLOFEN [Concomitant]
     Indication: OCCIPITAL NEURALGIA
     Route: 065
     Dates: start: 200811
  3. TRAZODONE [Concomitant]
     Indication: SLEEP DISORDER
     Route: 065
     Dates: start: 2009

REACTIONS (6)
  - Rash [Unknown]
  - Swelling face [Unknown]
  - Alopecia [Not Recovered/Not Resolved]
  - Ocular hyperaemia [Unknown]
  - Gastrointestinal disorder [Unknown]
  - Gastrooesophageal reflux disease [Unknown]
